FAERS Safety Report 23921225 (Version 1)
Quarter: 2024Q2

REPORT INFORMATION
  Report Type: Spontaneous
  Country: US (occurrence: None)
  Receive Date: 20240529
  Receipt Date: 20240529
  Transmission Date: 20240716
  Serious: Yes (Hospitalization, Other)
  Sender: FDA-Public Use
  Company Number: None

PATIENT
  Age: 72 Year
  Sex: Female
  Weight: 56.6 kg

DRUGS (1)
  1. FERRLECIT [Suspect]
     Active Substance: SODIUM FERRIC GLUCONATE COMPLEX
     Indication: Iron deficiency anaemia
     Dosage: OTHER FREQUENCY : ONCE;?
     Route: 042

REACTIONS (16)
  - Infusion related reaction [None]
  - Dyspnoea [None]
  - Abdominal pain upper [None]
  - Restlessness [None]
  - Lethargy [None]
  - Hypotension [None]
  - White blood cell count increased [None]
  - Haemoglobin increased [None]
  - Haematocrit increased [None]
  - Blood sodium increased [None]
  - Blood chloride increased [None]
  - Platelet count decreased [None]
  - Blood potassium decreased [None]
  - Blood calcium decreased [None]
  - Blood magnesium decreased [None]
  - Blood albumin decreased [None]

NARRATIVE: CASE EVENT DATE: 20240529
